FAERS Safety Report 4662774-4 (Version None)
Quarter: 2005Q2

REPORT INFORMATION
  Report Type: 
  Country: None (occurrence: None)
  Receive Date: 20050512
  Receipt Date: 20050422
  Transmission Date: 20051028
  Serious: Yes (Hospitalization, Disabling, Other)
  Sender: FDA-Public Use
  Company Number: FR_050205828

PATIENT
  Age: 73 Year
  Sex: Female
  Weight: 60 kg

DRUGS (5)
  1. GEMZAR [Suspect]
     Indication: ADENOCARCINOMA PANCREAS
     Dosage: 1000 MG/M2/3 OTHER
     Dates: start: 20040901, end: 20050218
  2. ACTRAPID (INSULIN) [Concomitant]
  3. TRANDATE [Concomitant]
  4. ALDACTONE [Concomitant]
  5. NPH INSULIN [Concomitant]

REACTIONS (5)
  - ASCITES [None]
  - INFLAMMATION [None]
  - OEDEMA PERIPHERAL [None]
  - SUPERINFECTION [None]
  - TOXIC EPIDERMAL NECROLYSIS [None]
